FAERS Safety Report 13212711 (Version 1)
Quarter: 2017Q1

REPORT INFORMATION
  Report Type: Spontaneous
  Country: IN (occurrence: IN)
  Receive Date: 20170210
  Receipt Date: 20170210
  Transmission Date: 20170428
  Serious: Yes (Death)
  Sender: FDA-Public Use
  Company Number: IN-PFIZER INC-2017054827

PATIENT
  Age: 73 Year
  Sex: Female

DRUGS (1)
  1. AROMASIN [Suspect]
     Active Substance: EXEMESTANE
     Indication: BREAST CANCER
     Dosage: 25 MG, 1X/DAY
     Route: 048
     Dates: end: 20170116

REACTIONS (9)
  - Abdominal pain [Unknown]
  - Cough [Unknown]
  - Nasopharyngitis [Fatal]
  - Dyspnoea [Fatal]
  - Blood glucose decreased [Unknown]
  - Chest pain [Unknown]
  - Pulmonary congestion [Fatal]
  - Neoplasm progression [Unknown]
  - Feeling abnormal [Unknown]
